FAERS Safety Report 23860244 (Version 2)
Quarter: 2024Q2

REPORT INFORMATION
  Report Type: Report from Study
  Country: CA (occurrence: CA)
  Receive Date: 20240515
  Receipt Date: 20240626
  Transmission Date: 20240715
  Serious: Yes (Death)
  Sender: FDA-Public Use
  Company Number: CA-ABBVIE-5760104

PATIENT
  Sex: Male

DRUGS (2)
  1. SKYRIZI [Suspect]
     Active Substance: RISANKIZUMAB-RZAA
     Indication: Psoriasis
     Route: 058
     Dates: start: 20211215
  2. APO KETOCONAZOLE [Concomitant]
     Indication: Seborrhoeic dermatitis
     Route: 061
     Dates: start: 202303

REACTIONS (2)
  - Death [Fatal]
  - Seborrhoeic dermatitis [Recovered/Resolved]

NARRATIVE: CASE EVENT DATE: 20230313
